FAERS Safety Report 18966689 (Version 1)
Quarter: 2021Q1

REPORT INFORMATION
  Report Type: Spontaneous
  Country: HR (occurrence: HR)
  Receive Date: 20210303
  Receipt Date: 20210303
  Transmission Date: 20210420
  Serious: Yes (Other)
  Sender: FDA-Public Use
  Company Number: HR-TEVA-2021-HR-1885141

PATIENT
  Age: 13 Year

DRUGS (2)
  1. QUETIAPINE. [Suspect]
     Active Substance: QUETIAPINE
     Dosage: 1 DF = 1 UNK:UNIT DOSE:50DOSAGEFORM
     Route: 048
     Dates: start: 20210114, end: 20210114
  2. NORMABEL [Suspect]
     Active Substance: DIAZEPAM
     Dosage: DF = 1 FILM?COATED TABLET:UNIT DOSE:60DOSAGEFORM
     Route: 048
     Dates: start: 20210114, end: 20210114

REACTIONS (3)
  - No adverse event [Unknown]
  - Suicide attempt [Unknown]
  - Intentional overdose [Unknown]

NARRATIVE: CASE EVENT DATE: 20210114
